FAERS Safety Report 6446480-1 (Version None)
Quarter: 2009Q4

REPORT INFORMATION
  Report Type: 
  Country: None (occurrence: None)
  Receive Date: 20091119
  Receipt Date: 20091117
  Transmission Date: 20100525
  Serious: Yes (Death)
  Sender: FDA-Public Use
  Company Number: PHEH2009US15284

PATIENT
  Sex: Male

DRUGS (1)
  1. EXJADE [Suspect]
     Dosage: 625 MG, UNK
     Route: 048

REACTIONS (2)
  - SEPSIS [None]
  - STAPHYLOCOCCAL INFECTION [None]
